FAERS Safety Report 21568010 (Version 1)
Quarter: 2022Q4

REPORT INFORMATION
  Report Type: Spontaneous
  Country: IR (occurrence: None)
  Receive Date: 20221108
  Receipt Date: 20221108
  Transmission Date: 20230112
  Serious: Yes (Other)
  Sender: FDA-Public Use
  Company Number: 2022A364936

PATIENT
  Age: 2 Year
  Sex: Female

DRUGS (12)
  1. NEXIUM [Suspect]
     Active Substance: ESOMEPRAZOLE MAGNESIUM
     Indication: Gastrooesophageal reflux disease
     Route: 065
  2. VITAMIN K [Concomitant]
     Active Substance: PHYTONADIONE
  3. NITISINONE [Concomitant]
     Active Substance: NITISINONE
  4. RETINOL/VITAMIN D NOS [Concomitant]
  5. VITAMIN E [Concomitant]
     Active Substance: .ALPHA.-TOCOPHEROL
  6. FOLIC ACID [Concomitant]
     Active Substance: FOLIC ACID
  7. IRON DROP [Concomitant]
  8. CITRIC ACID [Concomitant]
     Active Substance: CITRIC ACID MONOHYDRATE
  9. POTASSIUM CITRATE [Concomitant]
     Active Substance: POTASSIUM CITRATE
  10. SODIUM PHOSPHATE [Concomitant]
     Active Substance: SODIUM PHOSPHATE
  11. CALCITRIOL [Concomitant]
     Active Substance: CALCITRIOL
  12. ZINC SULFATE [Concomitant]
     Active Substance: ZINC SULFATE

REACTIONS (1)
  - Lichenoid keratosis [Recovering/Resolving]
